FAERS Safety Report 23414274 (Version 3)
Quarter: 2024Q1

REPORT INFORMATION
  Report Type: Spontaneous
  Country: US (occurrence: US)
  Receive Date: 20240118
  Receipt Date: 20240125
  Transmission Date: 20240409
  Serious: No
  Sender: FDA-Public Use
  Company Number: US-OPELLA-2024OHG001404

PATIENT
  Sex: Female

DRUGS (1)
  1. ASPERCREME WITH LIDOCAINE DRY [Suspect]
     Active Substance: LIDOCAINE
     Indication: Product used for unknown indication
     Dosage: STRENGTH;  5 G/118 ML

REACTIONS (2)
  - Drug ineffective [Unknown]
  - No adverse event [Unknown]
